FAERS Safety Report 5120523-X (Version None)
Quarter: 2006Q3

REPORT INFORMATION
  Report Type: 
  Country: None (occurrence: None)
  Receive Date: 20060928
  Receipt Date: 20060915
  Transmission Date: 20061208
  Serious: Yes (Hospitalization)
  Sender: FDA-Public Use
  Company Number: 2006113143

PATIENT
  Age: 39 Year
  Sex: Female
  Weight: 98.5 kg

DRUGS (9)
  1. SUTENT [Suspect]
     Indication: METASTATIC RENAL CELL CARCINOMA
     Dosage: 50 MG (50 MG, QD EVERYDAY), ORAL
     Route: 048
     Dates: start: 20060209
  2. ENALAPRIL MALEATE [Concomitant]
  3. CORTISONE ACETATE [Concomitant]
  4. METFORMIN HCL [Concomitant]
  5. GLIMEPIRIDE [Concomitant]
  6. BROWN MIXTURE (ANTIMONY POTASSIUM TARTRATE, GLYCEROL, LIQUORICE LIQUID [Concomitant]
  7. DEXTROMETHORPHAN HYDROBROMIDE [Concomitant]
  8. MORPHINE [Concomitant]
  9. MAAGNESIUM OXIDE (MAGNESIUM OXIDE) [Concomitant]

REACTIONS (2)
  - ANAEMIA [None]
  - PLEURAL EFFUSION [None]
